FAERS Safety Report 6577162-3 (Version None)
Quarter: 2010Q1

REPORT INFORMATION
  Report Type: 
  Country: None (occurrence: None)
  Receive Date: 20100210
  Receipt Date: 20100128
  Transmission Date: 20100710
  Serious: Yes (Hospitalization, Disabling, Other)
  Sender: FDA-Public Use
  Company Number: PHEH2008US02344

PATIENT
  Sex: Female

DRUGS (42)
  1. ZELNORM [Suspect]
     Indication: GASTROINTESTINAL DISORDER
     Dosage: 6 MG, UNK
     Route: 048
     Dates: start: 20050413, end: 20070401
  2. LIPITOR [Concomitant]
     Dosage: 10 MG / DAILY
     Route: 048
  3. LIPITOR [Concomitant]
     Dosage: 20 MG / DAILY
  4. WELLBUTRIN SR [Concomitant]
     Dosage: 150 MG / DAILY AM
  5. SYNTHROID [Concomitant]
     Dosage: 0.1 MG / DAILY
  6. PREVACID [Concomitant]
     Dosage: 30 MG / BID
  7. CLARITIN [Concomitant]
     Dosage: 10 MG / DAILY
  8. ESTRADERM [Concomitant]
     Dosage: UNK
     Route: 062
  9. ASPIRIN [Concomitant]
     Dosage: UNK
  10. HYDROCHLOROTHIAZIDE [Concomitant]
     Dosage: 25 MG / 1/2 TAB DAILY AM
     Route: 048
     Dates: end: 20080122
  11. MIRALAX [Concomitant]
     Dosage: UNK
  12. BUSPAR [Concomitant]
     Dosage: 10 MG / TID
  13. COUMADIN [Concomitant]
     Dosage: 6 MG / DAILY
  14. COUMADIN [Concomitant]
     Dosage: 6 MG DAILY, EXCEPT 3 MG ON WEDS
     Dates: end: 20070518
  15. COUMADIN [Concomitant]
     Dosage: 9 MG X 2 DAYS, THEN 6 MG DAILY
     Dates: start: 20070518
  16. BISOPROLOL [Concomitant]
     Dosage: 20 MG / DAILY AM
  17. SKELAXIN [Concomitant]
     Dosage: 800 MG
  18. CALCIUM CHANNEL BLOCKERS [Concomitant]
     Dosage: UNK
  19. ASPIRIN [Concomitant]
     Dosage: 3-25MG / DAILY
     Route: 048
  20. ATIVAN [Concomitant]
     Indication: ANXIETY
     Dosage: 0.5 MG / Q6H PRN
     Route: 048
  21. TRANXENE [Concomitant]
     Dosage: 7.5 MG / NIGHTLY
     Route: 048
  22. METOPROLOL TARTRATE [Concomitant]
     Dosage: UNK
  23. VERAPAMIL [Concomitant]
     Dosage: 180 MG / DAILY
     Route: 048
  24. LIDODERM [Concomitant]
     Dosage: UNK
     Route: 062
  25. DEPO-MEDROL [Concomitant]
     Dosage: UNK
  26. BOTOX [Concomitant]
     Dosage: UNK
  27. LABETALOL HCL [Concomitant]
     Dosage: 200 MG/AM, 100MG/PM, 200MG/QHS
     Dates: end: 20080122
  28. LABETALOL HCL [Concomitant]
     Dosage: 200MG / TWICE DAILY
     Dates: start: 20080122
  29. BENICAR HCT [Concomitant]
     Dosage: 20/12.5 MG / DAILY
     Dates: start: 20080122
  30. ENULOSE [Concomitant]
     Dosage: 1-2 TABLESPOONS / DAILY
  31. BACLOFEN [Concomitant]
     Dosage: 20 MG / TWO TABLETS DAILY
  32. DYNACIRC [Concomitant]
     Dosage: 5 MG / DAILY
  33. FLEET ENEMA                        /00766901/ [Concomitant]
     Dosage: UNK
  34. LEVAQUIN [Concomitant]
     Dosage: 500 MG / DAILY
  35. PROZAC [Concomitant]
     Dosage: 20 MG / DAILY
  36. TRAMADOL [Concomitant]
     Indication: PAIN
     Dosage: 50 MG / EVERY 4 HRS AS NEEDED
  37. TRAZODONE [Concomitant]
     Dosage: 150 MG / DAILY
  38. FLEXERIL [Concomitant]
     Dosage: 10 MG / HS
  39. LEXAPRO [Concomitant]
     Dosage: 10 MG / QD
  40. ULTRAM [Concomitant]
     Dosage: 50 MG / Q4
  41. LOPRESSOR [Concomitant]
     Dosage: 5 MG
  42. PANTOPRAZOLE [Concomitant]
     Dosage: 40 MG / EVERY 12 HOURS

REACTIONS (29)
  - ABDOMINAL PAIN [None]
  - ANXIETY [None]
  - BRAIN INJURY [None]
  - CEREBROVASCULAR ACCIDENT [None]
  - CHRONIC MYELOID LEUKAEMIA [None]
  - COLECTOMY [None]
  - CONSTIPATION [None]
  - CORONARY OSTIAL STENOSIS [None]
  - DEPRESSION [None]
  - DYSPHONIA [None]
  - FATIGUE [None]
  - GASTROOESOPHAGEAL REFLUX DISEASE [None]
  - HEART RATE INCREASED [None]
  - HEMIPARESIS [None]
  - HYPERCHOLESTEROLAEMIA [None]
  - HYPERTENSION [None]
  - INTERVERTEBRAL DISC SPACE NARROWING [None]
  - IRRITABLE BOWEL SYNDROME [None]
  - LARYNGITIS [None]
  - LEUKOCYTOSIS [None]
  - LUMBAR SPINAL STENOSIS [None]
  - MUSCLE SPASMS [None]
  - NEUROLOGICAL SYMPTOM [None]
  - PERIARTHRITIS [None]
  - RENAL ARTERY STENOSIS [None]
  - RETINAL HAEMORRHAGE [None]
  - SPEECH REHABILITATION [None]
  - SPINAL OSTEOARTHRITIS [None]
  - VISUAL IMPAIRMENT [None]
